FAERS Safety Report 8346931-1 (Version None)
Quarter: 2012Q2

REPORT INFORMATION
  Report Type: 
  Country: None (occurrence: None)
  Receive Date: 20120509
  Receipt Date: 20120507
  Transmission Date: 20120825
  Serious: Yes (Death, Other)
  Sender: FDA-Public Use
  Company Number: PHHY2012GB038691

PATIENT
  Age: 70 Year
  Sex: Male

DRUGS (2)
  1. GEMCITABINE [Suspect]
     Indication: LUNG NEOPLASM MALIGNANT
     Dosage: UNK UKN, UNK
  2. CARBOPLATIN [Suspect]
     Indication: LUNG NEOPLASM MALIGNANT
     Dosage: UNK UKN, UNK

REACTIONS (14)
  - ADENOCARCINOMA [None]
  - ERYTHEMA [None]
  - HEPATIC FUNCTION ABNORMAL [None]
  - RENAL IMPAIRMENT [None]
  - NEUTROPENIC SEPSIS [None]
  - SKIN PLAQUE [None]
  - HISTIOCYTIC NECROTISING LYMPHADENITIS [None]
  - CONFUSIONAL STATE [None]
  - SKIN MASS [None]
  - PYREXIA [None]
  - PERIORBITAL OEDEMA [None]
  - MALAISE [None]
  - ESCHERICHIA URINARY TRACT INFECTION [None]
  - LYMPHADENOPATHY [None]
